FAERS Safety Report 6332761-9 (Version None)
Quarter: 2009Q3

REPORT INFORMATION
  Report Type: 
  Country: None (occurrence: None)
  Receive Date: 20090828
  Receipt Date: 20090819
  Transmission Date: 20100115
  Serious: Yes (Other)
  Sender: FDA-Public Use
  Company Number: A0803311A

PATIENT
  Sex: Male

DRUGS (2)
  1. AVANDIA [Suspect]
     Dosage: 4MG UNKNOWN
     Route: 048
     Dates: start: 20010101
  2. HUMULIN 70/30 [Concomitant]

REACTIONS (3)
  - CARDIAC FAILURE [None]
  - CORONARY ARTERY DISEASE [None]
  - VASCULAR GRAFT [None]
